FAERS Safety Report 4334385-1 (Version None)
Quarter: 2004Q1

REPORT INFORMATION
  Report Type: 
  Country: None (occurrence: None)
  Receive Date: 20040326
  Receipt Date: 20040114
  Transmission Date: 20041129
  Serious: No
  Sender: FDA-Public Use
  Company Number: US-JNJFOC-20040102753

PATIENT
  Age: 70 Year
  Sex: Female

DRUGS (3)
  1. REMINYL [Suspect]
     Indication: DEMENTIA ALZHEIMER'S TYPE
     Dosage: 12 MG, 2 IN 1 DAY, ORAL; 10 MG, 2 IN 1 DAY, ORAL; 8 MG, 2 IN 1 DAY, ORAL
     Route: 048
     Dates: start: 20030701, end: 20040111
  2. REMINYL [Suspect]
     Indication: DEMENTIA ALZHEIMER'S TYPE
     Dosage: 12 MG, 2 IN 1 DAY, ORAL; 10 MG, 2 IN 1 DAY, ORAL; 8 MG, 2 IN 1 DAY, ORAL
     Route: 048
     Dates: start: 20040101
  3. REMINYL [Suspect]
     Indication: DEMENTIA ALZHEIMER'S TYPE
     Dosage: 12 MG, 2 IN 1 DAY, ORAL; 10 MG, 2 IN 1 DAY, ORAL; 8 MG, 2 IN 1 DAY, ORAL
     Route: 048
     Dates: start: 20040112

REACTIONS (1)
  - BLOOD ALKALINE PHOSPHATASE [None]
